FAERS Safety Report 5629791-9 (Version None)
Quarter: 2008Q1

REPORT INFORMATION
  Report Type: 
  Country: None (occurrence: None)
  Receive Date: 20080218
  Receipt Date: 20080214
  Transmission Date: 20080703
  Serious: Yes (Death)
  Sender: FDA-Public Use
  Company Number: NL-ABBOTT-08P-114-0438459-00

PATIENT
  Sex: Male

DRUGS (4)
  1. HUMIRA [Suspect]
     Indication: RHEUMATOID ARTHRITIS
     Dosage: ^40 INJVIST 50MG/ML WWSP 0.8ML^
     Route: 058
     Dates: start: 20071009, end: 20080130
  2. PREDNISOLONE [Concomitant]
     Indication: DRUG USE FOR UNKNOWN INDICATION
     Dosage: ONE AND A HALF TABLETS
     Route: 048
     Dates: start: 20040424, end: 20080130
  3. RISEDRONATE SODIUM [Concomitant]
     Indication: DRUG USE FOR UNKNOWN INDICATION
     Route: 048
     Dates: start: 20060920, end: 20080130
  4. OMEPRAZOL ACTAVIS [Concomitant]
     Indication: DRUG USE FOR UNKNOWN INDICATION
     Route: 048
     Dates: start: 20060403, end: 20080130

REACTIONS (1)
  - CARDIAC ARREST [None]
